FAERS Safety Report 13925205 (Version 2)
Quarter: 2018Q4

REPORT INFORMATION
  Report Type: Spontaneous
  Country: JP (occurrence: JP)
  Receive Date: 20170831
  Receipt Date: 20181017
  Transmission Date: 20190204
  Serious: Yes (Life-Threatening, Other)
  Sender: FDA-Public Use
  Company Number: JP-RECORDATI RARE DISEASES-JP-R13005-17-00193

PATIENT
  Age: 2 Day
  Sex: Female
  Weight: .93 kg

DRUGS (10)
  1. CEFAZOLIN SODIUM. [Concomitant]
     Active Substance: CEFAZOLIN SODIUM
     Indication: PROPHYLAXIS
     Route: 065
     Dates: start: 20160613, end: 20160615
  2. KAYTWO N [Concomitant]
     Active Substance: MENATETRENONE
     Indication: PROPHYLAXIS
     Route: 042
     Dates: start: 20160612, end: 20160612
  3. FUROSEMIDE. [Concomitant]
     Active Substance: FUROSEMIDE
     Indication: PROPHYLAXIS
     Route: 048
     Dates: start: 20160616, end: 20160616
  4. RESPIA [Suspect]
     Active Substance: CAFFEINE
     Indication: INFANTILE APNOEA
     Route: 042
     Dates: start: 20160609, end: 20160609
  5. BIFIDOBACTERIUM COMBINED DRUG [Concomitant]
     Indication: PROPHYLAXIS
     Route: 048
     Dates: start: 20160608, end: 20180802
  6. INOVAN [Concomitant]
     Active Substance: DOPAMINE HYDROCHLORIDE
     Indication: PATENT DUCTUS ARTERIOSUS
     Route: 065
     Dates: start: 20160612, end: 20160615
  7. RESPIA [Suspect]
     Active Substance: CAFFEINE
     Route: 042
     Dates: start: 20160610, end: 20160621
  8. RESPIA [Suspect]
     Active Substance: CAFFEINE
     Route: 048
     Dates: start: 20160622, end: 20160809
  9. BIO-THREE [Concomitant]
     Active Substance: HERBALS
     Indication: PROPHYLAXIS
     Route: 048
     Dates: start: 20160608, end: 20160802
  10. INDACIN [Suspect]
     Active Substance: INDOMETHACIN
     Indication: PATENT DUCTUS ARTERIOSUS
     Route: 042
     Dates: start: 20160607, end: 20160613

REACTIONS (4)
  - Renal failure [Recovered/Resolved]
  - Patent ductus arteriosus [Recovered/Resolved]
  - Condition aggravated [Recovered/Resolved]
  - Infantile apnoea [Unknown]

NARRATIVE: CASE EVENT DATE: 20160608
